FAERS Safety Report 8489727-2 (Version None)
Quarter: 2012Q3

REPORT INFORMATION
  Report Type: 
  Country: None (occurrence: None)
  Receive Date: 20120705
  Receipt Date: 20120627
  Transmission Date: 20120928
  Serious: Yes (Hospitalization)
  Sender: FDA-Public Use
  Company Number: FR-GLAXOSMITHKLINE-B0810968A

PATIENT
  Sex: Female
  Weight: 97 kg

DRUGS (2)
  1. BACTRIM [Suspect]
     Indication: PSEUDOMONAS INFECTION
     Dosage: 1UNIT TWICE PER DAY
     Route: 048
     Dates: start: 20120324, end: 20120330
  2. CLAVULANATE POTASSIUM [Suspect]
     Indication: PSEUDOMONAS INFECTION
     Dosage: 5G THREE TIMES PER DAY
     Route: 048
     Dates: start: 20120328

REACTIONS (3)
  - CONDITION AGGRAVATED [None]
  - NEUTROPENIA [None]
  - THROMBOCYTOPENIA [None]
